FAERS Safety Report 12136746 (Version 1)
Quarter: 2016Q1

REPORT INFORMATION
  Report Type: Spontaneous
  Country: US (occurrence: US)
  Receive Date: 20160302
  Receipt Date: 20160302
  Transmission Date: 20160526
  Serious: No
  Sender: FDA-Public Use
  Company Number: US-GLAXOSMITHKLINE-US2016027853

PATIENT

DRUGS (1)
  1. TANZEUM [Suspect]
     Active Substance: ALBIGLUTIDE
     Route: 042

REACTIONS (4)
  - Rash erythematous [Unknown]
  - Hypersensitivity [Unknown]
  - Rash pruritic [Unknown]
  - Injection site hypersensitivity [Unknown]
